FAERS Safety Report 7982528-0 (Version None)
Quarter: 2011Q4

REPORT INFORMATION
  Report Type: 
  Country: None (occurrence: None)
  Receive Date: 20111215
  Receipt Date: 20111214
  Transmission Date: 20120403
  Serious: No
  Sender: FDA-Public Use
  Company Number: PHEH2011US009522

PATIENT
  Sex: Female
  Weight: 105 kg

DRUGS (14)
  1. FUROSEMIDE [Concomitant]
  2. CALCIUM CARBONATE [Concomitant]
     Dosage: 500 MG, UNK
  3. ASPIRIN [Concomitant]
     Dosage: 81 MG
  4. CALCIUM CARBONATE [Concomitant]
     Dosage: 600 MG
  5. RAMIPRIL [Concomitant]
  6. METOPROLOL TARTRATE [Concomitant]
  7. OMEPRAZOLE [Concomitant]
     Dosage: 20 MG,
  8. ALTACE [Concomitant]
     Dosage: 2.5 MG
  9. AMLODIPINE [Concomitant]
  10. TASIGNA [Suspect]
     Dosage: 2 DF, BID
     Route: 048
  11. NITROGLYCERIN [Concomitant]
     Dosage: 2.5 MG, DAILY
  12. CLARITIN [Concomitant]
     Dosage: 10 MG,
  13. HYDROXYUREA [Concomitant]
     Dosage: 500 MG, UNK
  14. MULTI-VITAMIN [Concomitant]

REACTIONS (6)
  - NAUSEA [None]
  - OROPHARYNGEAL PAIN [None]
  - MOOD SWINGS [None]
  - CONSTIPATION [None]
  - MEMORY IMPAIRMENT [None]
  - RASH [None]
